FAERS Safety Report 9246320 (Version 1)
Quarter: 2013Q2

REPORT INFORMATION
  Report Type: Spontaneous
  Country: US (occurrence: US)
  Receive Date: 20130422
  Receipt Date: 20130422
  Transmission Date: 20140414
  Serious: No
  Sender: FDA-Public Use
  Company Number: US-BAYER-2013-039747

PATIENT
  Age: 48 Year
  Sex: Female

DRUGS (1)
  1. MAGNEVIST [Suspect]
     Indication: NUCLEAR MAGNETIC RESONANCE IMAGING
     Dosage: 11 ML, UNK
     Dates: start: 20130327

REACTIONS (4)
  - Sneezing [None]
  - Nasal discomfort [None]
  - Oral pruritus [None]
  - Dysgeusia [None]
